FAERS Safety Report 8206963-0 (Version None)
Quarter: 2012Q1

REPORT INFORMATION
  Report Type: 
  Country: None (occurrence: None)
  Receive Date: 20120312
  Receipt Date: 20120223
  Transmission Date: 20120608
  Serious: Yes (Hospitalization, Disabling)
  Sender: FDA-Public Use
  Company Number: ESP-CLT-2012003

PATIENT
  Age: 17 Year
  Sex: Male

DRUGS (3)
  1. VITAMIN B6 [Concomitant]
  2. CYSTADANE [Suspect]
     Indication: HOMOCYSTINURIA
     Dosage: 6 G EVERY DAY, 18 G EVERY DAY, ORAL
     Route: 048
     Dates: start: 20050503
  3. FOLIC ACID [Concomitant]

REACTIONS (2)
  - RETINAL DETACHMENT [None]
  - FOOT FRACTURE [None]
